FAERS Safety Report 7569373-5 (Version None)
Quarter: 2011Q2

REPORT INFORMATION
  Report Type: 
  Country: None (occurrence: None)
  Receive Date: 20110623
  Receipt Date: 20080310
  Transmission Date: 20111010
  Serious: Yes (Other)
  Sender: FDA-Public Use
  Company Number: CA-GENENTECH-320502

PATIENT
  Sex: Female
  Weight: 55 kg

DRUGS (1)
  1. OMALIZUMAB [Suspect]
     Indication: ASTHMA
     Dosage: 375 MG, UNKNOWN
     Route: 058
     Dates: start: 20060801

REACTIONS (8)
  - SACROILIITIS [None]
  - DEPRESSION [None]
  - ARTHRALGIA [None]
  - APNOEA [None]
  - FATIGUE [None]
  - PSORIASIS [None]
  - STRESS [None]
  - HYPERSOMNIA [None]
